FAERS Safety Report 24646801 (Version 3)
Quarter: 2024Q4

REPORT INFORMATION
  Report Type: Spontaneous
  Country: US (occurrence: US)
  Receive Date: 20241121
  Receipt Date: 20241226
  Transmission Date: 20250114
  Serious: No
  Sender: ROCHE
  Company Number: US-ROCHE-10000134017

PATIENT
  Age: 34 Year
  Sex: Female
  Weight: 78.47 kg

DRUGS (3)
  1. XOLAIR PFS [Suspect]
     Active Substance: OMALIZUMAB
     Indication: Asthma
     Dosage: SELF ADMINISTER - FATTY TISSUE - STOMACH
     Route: 058
  2. XOLAIR PFS [Suspect]
     Active Substance: OMALIZUMAB
     Indication: Urticaria
     Dosage: SELF ADMINISTER - FATTY TISSUE - STOMACH
     Route: 058
     Dates: start: 2021
  3. XOLAIR PFS [Suspect]
     Active Substance: OMALIZUMAB
     Indication: Urticaria
     Dosage: SELF ADMINISTER - FATTY TISSUE - STOMACH
     Route: 058
     Dates: start: 202407

REACTIONS (6)
  - Underdose [Unknown]
  - Exposure via skin contact [Unknown]
  - Device defective [Unknown]
  - Device leakage [Unknown]
  - No adverse event [Unknown]
  - Product storage error [Unknown]

NARRATIVE: CASE EVENT DATE: 20241112
